FAERS Safety Report 4450621-5 (Version None)
Quarter: 2004Q3

REPORT INFORMATION
  Report Type: 
  Country: None (occurrence: None)
  Receive Date: 20040913
  Receipt Date: 20040517
  Transmission Date: 20050211
  Serious: No
  Sender: FDA-Public Use
  Company Number: 2004-BP-03814BP(0)

PATIENT
  Age: 75 Year
  Sex: Female

DRUGS (9)
  1. SPIRIVA [Suspect]
     Indication: CHRONIC OBSTRUCTIVE AIRWAYS DISEASE
     Dosage: 18 MCG (18 MCG) , IH
     Route: 055
     Dates: start: 20040510
  2. SYNTHROID [Concomitant]
  3. FUROSEMIDE [Concomitant]
  4. COUMADIN [Concomitant]
  5. ASACOL [Concomitant]
  6. XALATAN [Concomitant]
  7. ALPHAGAN [Concomitant]
  8. DUONEB [Concomitant]
  9. SEREVENT [Concomitant]

REACTIONS (1)
  - DYSURIA [None]
